FAERS Safety Report 11310084 (Version 1)
Quarter: 2015Q3

REPORT INFORMATION
  Report Type: Report from Study
  Country: BR (occurrence: BR)
  Receive Date: 20150724
  Receipt Date: 20150724
  Transmission Date: 20151125
  Serious: Yes (Hospitalization, Other)
  Sender: FDA-Public Use
  Company Number: BR-EMD SERONO-7307755

PATIENT
  Age: 42 Year
  Sex: Female

DRUGS (2)
  1. REBIF [Suspect]
     Active Substance: INTERFERON BETA-1A
     Indication: RELAPSING-REMITTING MULTIPLE SCLEROSIS
     Dates: start: 20120104
  2. REBIF [Suspect]
     Active Substance: INTERFERON BETA-1A

REACTIONS (10)
  - Gastroenteritis [Recovered/Resolved]
  - Presyncope [Recovered/Resolved]
  - Alopecia [Unknown]
  - Anaemia [Unknown]
  - Endometriosis [Recovered/Resolved]
  - Decreased immune responsiveness [Unknown]
  - Weight decreased [Unknown]
  - Viral infection [Recovered/Resolved]
  - Functional gastrointestinal disorder [Unknown]
  - Platelet count increased [Unknown]

NARRATIVE: CASE EVENT DATE: 201403
